FAERS Safety Report 13973407 (Version 4)
Quarter: 2019Q4

REPORT INFORMATION
  Report Type: Spontaneous
  Country: FR (occurrence: FR)
  Receive Date: 20170915
  Receipt Date: 20191231
  Transmission Date: 20200122
  Serious: Yes (Other)
  Sender: FDA-Public Use
  Company Number: FR-BRISTOL-MYERS SQUIBB COMPANY-BMS-2017-081643

PATIENT
  Age: 74 Year
  Sex: Female

DRUGS (1)
  1. ELIQUIS [Suspect]
     Active Substance: APIXABAN
     Indication: JUGULAR VEIN THROMBOSIS
     Dosage: 2 DOSAGE FORM, BID
     Route: 048
     Dates: start: 20170719, end: 20170828

REACTIONS (3)
  - Focal nodular hyperplasia [Not Recovered/Not Resolved]
  - Intentional product use issue [Unknown]
  - Hepatic enzyme increased [Recovering/Resolving]

NARRATIVE: CASE EVENT DATE: 20170828
